FAERS Safety Report 22586799 (Version 1)
Quarter: 2023Q2

REPORT INFORMATION
  Report Type: Report from Study
  Country: AE (occurrence: AE)
  Receive Date: 20230611
  Receipt Date: 20230611
  Transmission Date: 20230721
  Serious: Yes (Hospitalization, Other)
  Sender: FDA-Public Use
  Company Number: AE-ABBVIE-5283262

PATIENT
  Age: 38 Year
  Sex: Male

DRUGS (1)
  1. HUMIRA [Suspect]
     Active Substance: ADALIMUMAB
     Indication: Uveitis
     Route: 058
     Dates: start: 20211214

REACTIONS (3)
  - Corneal transplant [Recovered/Resolved]
  - Surgical failure [Recovered/Resolved]
  - Corneal transplant [Recovered/Resolved]

NARRATIVE: CASE EVENT DATE: 20220712
